FAERS Safety Report 10666392 (Version 3)
Quarter: 2015Q1

REPORT INFORMATION
  Report Type: Report from Study
  Country: TW (occurrence: TW)
  Receive Date: 20141220
  Receipt Date: 20150206
  Transmission Date: 20150720
  Serious: Yes (Life-Threatening, Hospitalization)
  Sender: FDA-Public Use
  Company Number: TW-ABBVIE-14K-153-1321892-00

PATIENT
  Age: 55 Year
  Sex: Male
  Weight: 68 kg

DRUGS (3)
  1. LEFLUNOMIDE. [Concomitant]
     Active Substance: LEFLUNOMIDE
     Indication: PSORIATIC ARTHROPATHY
     Route: 048
     Dates: start: 20140123
  2. METHOTREXATE [Concomitant]
     Active Substance: METHOTREXATE
     Indication: PSORIATIC ARTHROPATHY
     Route: 048
     Dates: start: 20130604
  3. HUMIRA [Suspect]
     Active Substance: ADALIMUMAB
     Indication: PSORIATIC ARTHROPATHY
     Route: 058
     Dates: start: 20140617, end: 20141125

REACTIONS (18)
  - Liver disorder [Not Recovered/Not Resolved]
  - Abdominal pain [Recovered/Resolved]
  - Blood pressure abnormal [Unknown]
  - Chills [Recovered/Resolved]
  - Pyrexia [Recovered/Resolved]
  - Chest X-ray abnormal [Unknown]
  - Abdominal distension [Not Recovered/Not Resolved]
  - Ascites [Not Recovered/Not Resolved]
  - Acquired diaphragmatic eventration [Unknown]
  - Altered state of consciousness [Unknown]
  - Haematochezia [Recovered/Resolved]
  - Blood calcium decreased [Unknown]
  - Cholelithiasis [Not Recovered/Not Resolved]
  - White blood cell count increased [Unknown]
  - Oesophageal squamous cell carcinoma [Not Recovered/Not Resolved]
  - Haemoglobin decreased [Not Recovered/Not Resolved]
  - Platelet count decreased [Unknown]
  - Splenomegaly [Not Recovered/Not Resolved]

NARRATIVE: CASE EVENT DATE: 20141203
